FAERS Safety Report 9331899 (Version 1)
Quarter: 2013Q2

REPORT INFORMATION
  Report Type: Spontaneous
  Country: GB (occurrence: None)
  Receive Date: 20130603
  Receipt Date: 20130603
  Transmission Date: 20140414
  Serious: Yes (Death)
  Sender: FDA-Public Use
  Company Number: GB-022887

PATIENT
  Age: 6 Year
  Sex: Male

DRUGS (4)
  1. BUSULFAN [Suspect]
     Indication: FAMILIAL HAEMOPHAGOCYTIC LYMPHOHISTIOCYTOSIS
  2. METHOTREXATE (METHOTREXATE) [Concomitant]
  3. MYCOPHENOLATE MOFETIL (MYCOPHENOLIC ACID) [Concomitant]
  4. PREDNISOLONE (PREDNISOLONE) [Concomitant]

REACTIONS (2)
  - Pseudomonal sepsis [None]
  - Multiple-drug resistance [None]
